FAERS Safety Report 25726097 (Version 1)
Quarter: 2025Q3

REPORT INFORMATION
  Report Type: Spontaneous
  Country: US (occurrence: None)
  Receive Date: 20250824
  Receipt Date: 20250824
  Transmission Date: 20251021
  Serious: Yes (Other)
  Sender: FDA-CTU
  Company Number: None

PATIENT
  Age: 34 Year
  Sex: Female
  Weight: 47.25 kg

DRUGS (4)
  1. HALLS STRAWBERRY [Suspect]
     Active Substance: MENTHOL
     Indication: Oropharyngeal pain
     Route: 048
     Dates: start: 20250810, end: 20250816
  2. HALLS STRAWBERRY [Suspect]
     Active Substance: MENTHOL
     Indication: Upper-airway cough syndrome
  3. ZOFRAN [Concomitant]
     Active Substance: ONDANSETRON HYDROCHLORIDE
  4. TUMS [Concomitant]
     Active Substance: CALCIUM CARBONATE

REACTIONS (5)
  - Diarrhoea [None]
  - Oropharyngeal pain [None]
  - Nausea [None]
  - Clostridium difficile infection [None]
  - Gastroenteritis Escherichia coli [None]

NARRATIVE: CASE EVENT DATE: 20250810
